FAERS Safety Report 16493837 (Version 1)
Quarter: 2019Q2

REPORT INFORMATION
  Report Type: Spontaneous
  Country: US (occurrence: US)
  Receive Date: 20190628
  Receipt Date: 20190628
  Transmission Date: 20190711
  Serious: Yes (Other)
  Sender: FDA-Public Use
  Company Number: US-CELLTRION INC.-2019US020215

PATIENT

DRUGS (1)
  1. INFLECTRA [Suspect]
     Active Substance: INFLIXIMAB-DYYB
     Indication: PSORIATIC ARTHROPATHY
     Dosage: (3 MONTHS AGO)
     Route: 065

REACTIONS (3)
  - Intentional dose omission [Unknown]
  - Ophthalmic herpes zoster [Unknown]
  - Herpes zoster [Unknown]
